FAERS Safety Report 15812720 (Version 2)
Quarter: 2019Q1

REPORT INFORMATION
  Report Type: Spontaneous
  Country: PT (occurrence: PT)
  Receive Date: 20190111
  Receipt Date: 20190308
  Transmission Date: 20190417
  Serious: Yes (Hospitalization, Other)
  Sender: FDA-Public Use
  Company Number: PT-SA-2019SA004511

PATIENT
  Age: 65 Year
  Sex: Female

DRUGS (6)
  1. GABAPENTIN. [Suspect]
     Active Substance: GABAPENTIN
     Indication: PAIN
     Dosage: UNK
  2. TRAMADOL HYDROCHLORIDE. [Suspect]
     Active Substance: TRAMADOL HYDROCHLORIDE
     Indication: PAIN
     Route: 065
  3. INDAPAMIDE. [Suspect]
     Active Substance: INDAPAMIDE
     Indication: HYPERTENSION
     Route: 065
  4. PARACETAMOL [Suspect]
     Active Substance: ACETAMINOPHEN
     Indication: ARTHRALGIA
     Dosage: UNK
  5. RAMIPRIL. [Suspect]
     Active Substance: RAMIPRIL
     Indication: HYPERTENSION
     Dosage: UNK
  6. FLUPIRTINE MALEATE [Suspect]
     Active Substance: FLUPIRTINE MALEATE
     Indication: PAIN
     Dosage: UNK UNK, UNK
     Route: 065

REACTIONS (12)
  - Weight decreased [Unknown]
  - Nausea [Unknown]
  - Asthenia [Unknown]
  - Hyponatraemia [Unknown]
  - Lung carcinoma cell type unspecified stage IV [Unknown]
  - General physical health deterioration [Unknown]
  - Vomiting [Unknown]
  - Cough [Unknown]
  - Inappropriate antidiuretic hormone secretion [Unknown]
  - Iatrogenic injury [Unknown]
  - Neurone-specific enolase increased [Unknown]
  - Discomfort [Unknown]
